FAERS Safety Report 25223316 (Version 1)
Quarter: 2025Q2

REPORT INFORMATION
  Report Type: Spontaneous
  Country: US (occurrence: US)
  Receive Date: 20250422
  Receipt Date: 20250422
  Transmission Date: 20250716
  Serious: Yes (Hospitalization)
  Sender: DR REDDYS
  Company Number: None

PATIENT
  Age: 14 Year
  Sex: Female

DRUGS (1)
  1. PROPOFOL [Suspect]
     Active Substance: PROPOFOL
     Indication: Sedation
     Dosage: SEDATION WAS MAXIMIZED DUE TO REFRACTORY ICP SPIKES. SHE RECEIVED LESS THAN 72 HOURS OF PROPOFOL AT

REACTIONS (6)
  - Propofol infusion syndrome [Unknown]
  - Haemodynamic instability [Unknown]
  - Metabolic acidosis [Unknown]
  - Hypertriglyceridaemia [Unknown]
  - Acute kidney injury [Unknown]
  - Liver injury [Recovered/Resolved]
